FAERS Safety Report 7308007-1 (Version None)
Quarter: 2011Q1

REPORT INFORMATION
  Report Type: 
  Country: None (occurrence: None)
  Receive Date: 20110209
  Receipt Date: 20110124
  Transmission Date: 20110831
  Serious: Yes (Hospitalization, Other)
  Sender: FDA-Public Use
  Company Number: 2011MA000604

PATIENT
  Age: 70 Year
  Sex: Female

DRUGS (10)
  1. CYCLOPHOSPHAMIDE [Concomitant]
  2. PACLITAXEL [Suspect]
     Indication: BREAST CANCER
     Dosage: ;IV
     Route: 042
  3. CAPECITABINE [Concomitant]
  4. TAMOXIPEN [Concomitant]
  5. TRASTUZUMAB [Concomitant]
  6. DOXORUBICIN [Concomitant]
  7. METHOTREXATE [Concomitant]
  8. PACLITAXEL [Concomitant]
  9. LETROZOLE [Concomitant]
  10. FLUOROURACIL [Concomitant]

REACTIONS (2)
  - MYELODYSPLASTIC SYNDROME [None]
  - ACUTE MYELOID LEUKAEMIA [None]
